FAERS Safety Report 6342820-2 (Version None)
Quarter: 2009Q3

REPORT INFORMATION
  Report Type: 
  Country: None (occurrence: None)
  Receive Date: 20090908
  Receipt Date: 20090831
  Transmission Date: 20100115
  Serious: Yes (Hospitalization)
  Sender: FDA-Public Use
  Company Number: FR-JNJFOC-20090900659

PATIENT
  Sex: Male
  Weight: 1.82 kg

DRUGS (5)
  1. EPITOMAX [Suspect]
     Indication: DRUG EXPOSURE DURING PREGNANCY
  2. TEGRETOL [Suspect]
     Indication: DRUG EXPOSURE DURING PREGNANCY
  3. URBANYL [Suspect]
     Indication: DRUG EXPOSURE DURING PREGNANCY
  4. LAMICTAL [Suspect]
     Indication: DRUG EXPOSURE DURING PREGNANCY
  5. MIRENA [Suspect]
     Indication: DRUG EXPOSURE DURING PREGNANCY

REACTIONS (5)
  - CEREBRAL HAEMORRHAGE [None]
  - HYPERTONIA [None]
  - MUSCULOSKELETAL STIFFNESS [None]
  - PLAGIOCEPHALY [None]
  - PREMATURE BABY [None]
